FAERS Safety Report 23826775 (Version 1)
Quarter: 2024Q2

REPORT INFORMATION
  Report Type: Spontaneous
  Country: US (occurrence: US)
  Receive Date: 20240507
  Receipt Date: 20240507
  Transmission Date: 20240716
  Serious: No
  Sender: FDA-Public Use
  Company Number: US-BRISTOL-MYERS SQUIBB COMPANY-2024-070410

PATIENT
  Age: 50 Year
  Sex: Female
  Weight: 86.18 kg

DRUGS (1)
  1. ELIQUIS [Suspect]
     Active Substance: APIXABAN
     Indication: Cardiac ventricular thrombosis
     Route: 048
     Dates: start: 202403

REACTIONS (2)
  - Off label use [Unknown]
  - Illness [Unknown]

NARRATIVE: CASE EVENT DATE: 20240301
